FAERS Safety Report 8485650-8 (Version None)
Quarter: 2012Q3

REPORT INFORMATION
  Report Type: 
  Country: None (occurrence: None)
  Receive Date: 20120703
  Receipt Date: 20120625
  Transmission Date: 20120928
  Serious: Yes (Hospitalization)
  Sender: FDA-Public Use
  Company Number: US-B.I. PHARMACEUTICALS,INC./RIDGEFIELD-2012-BP-14461BP

PATIENT
  Age: 65 Year
  Sex: Female

DRUGS (7)
  1. TRADJENTA [Suspect]
     Indication: TYPE 2 DIABETES MELLITUS
     Dosage: 5 MG
     Route: 048
     Dates: start: 20120518, end: 20120622
  2. DIOVAN [Concomitant]
  3. GLIPIZIDE [Concomitant]
     Dosage: 5 MG
  4. CHORIONIC GONADOTROPIN [Concomitant]
     Indication: WEIGHT CONTROL
  5. LIPITOR [Concomitant]
  6. NORVASC [Concomitant]
  7. COREG [Concomitant]

REACTIONS (1)
  - PANCREATITIS [None]
